FAERS Safety Report 18650988 (Version 1)
Quarter: 2020Q4

REPORT INFORMATION
  Report Type: Spontaneous
  Country: US (occurrence: US)
  Receive Date: 20201222
  Receipt Date: 20201222
  Transmission Date: 20210114
  Serious: No
  Sender: FDA-Public Use
  Company Number: US-PFIZER INC-2020504248

PATIENT
  Age: 63 Year
  Sex: Male

DRUGS (3)
  1. ADVIL LIQUI-GELS [Suspect]
     Active Substance: IBUPROFEN
     Dosage: UNK (TAKING PM 40CT. I TOOK 4-5)
  2. ADVIL LIQUI-GELS [Suspect]
     Active Substance: IBUPROFEN
     Dosage: UNK, 2X/DAY
     Dates: start: 2020
  3. ADVIL LIQUI-GELS [Suspect]
     Active Substance: IBUPROFEN
     Dosage: UNK, 1X/DAY, (TAKING THE PM ONES)
     Dates: start: 20201214

REACTIONS (5)
  - Renal disorder [Unknown]
  - Cardiac disorder [Unknown]
  - Pruritus [Unknown]
  - Urticaria [Unknown]
  - Lung disorder [Unknown]
